FAERS Safety Report 23443890 (Version 3)
Quarter: 2024Q1

REPORT INFORMATION
  Report Type: Spontaneous
  Country: US (occurrence: US)
  Receive Date: 20240125
  Receipt Date: 20240320
  Transmission Date: 20240410
  Serious: Yes (Other)
  Sender: FDA-Public Use
  Company Number: US-PFIZER INC-PV202400009898

PATIENT
  Age: 22 Year
  Sex: Female
  Weight: 67.6 kg

DRUGS (3)
  1. LINEZOLID [Suspect]
     Active Substance: LINEZOLID
     Dosage: UNK
  2. AMIKACIN [Concomitant]
     Active Substance: AMIKACIN
     Dosage: UNK
     Dates: start: 20230101
  3. OMADACYCLINE [Concomitant]
     Active Substance: OMADACYCLINE
     Dosage: UNK

REACTIONS (3)
  - Mycobacterium abscessus infection [Unknown]
  - Skin lesion [Unknown]
  - Pathogen resistance [Unknown]
